FAERS Safety Report 10146337 (Version 1)
Quarter: 2014Q2

REPORT INFORMATION
  Report Type: Report from Study
  Country: US (occurrence: US)
  Receive Date: 20140501
  Receipt Date: 20140501
  Transmission Date: 20141212
  Serious: Yes (Hospitalization, Other)
  Sender: FDA-Public Use
  Company Number: US-ABBVIE-14P-163-1228409-00

PATIENT
  Age: 67 Year
  Sex: Female

DRUGS (11)
  1. HUMIRA [Suspect]
     Indication: RHEUMATOID ARTHRITIS
     Route: 058
     Dates: start: 20131021, end: 20131201
  2. HUMALOG [Concomitant]
     Indication: DIABETES MELLITUS
  3. LEVIMIR [Concomitant]
     Indication: DIABETES MELLITUS
  4. GABAPENTIN [Concomitant]
     Indication: PRODUCT USED FOR UNKNOWN INDICATION
  5. FOLIC ACID [Concomitant]
     Indication: VITAMIN SUPPLEMENTATION
  6. FLONASE [Concomitant]
     Indication: PRODUCT USED FOR UNKNOWN INDICATION
  7. PROTONIX [Concomitant]
     Indication: PRODUCT USED FOR UNKNOWN INDICATION
  8. EPIVIR [Concomitant]
     Indication: HIV INFECTION
  9. KALETRA [Concomitant]
     Indication: HIV INFECTION
  10. CALCIUM ACETATE [Concomitant]
     Indication: NEPHROPATHY
  11. CARVEDILOL [Concomitant]
     Indication: PRODUCT USED FOR UNKNOWN INDICATION

REACTIONS (6)
  - Renal failure chronic [Unknown]
  - Staphylococcal infection [Unknown]
  - Endocarditis [Unknown]
  - Cardiac operation [Recovered/Resolved]
  - Bacteraemia [Unknown]
  - Sepsis [Unknown]
